FAERS Safety Report 8048325-5 (Version None)
Quarter: 2012Q1

REPORT INFORMATION
  Report Type: 
  Country: None (occurrence: None)
  Receive Date: 20120117
  Receipt Date: 20120110
  Transmission Date: 20120608
  Serious: No
  Sender: FDA-Public Use
  Company Number: US-PFIZER INC-2011301163

PATIENT
  Sex: Female

DRUGS (3)
  1. NARDIL [Suspect]
     Dosage: 15 MG, BY MOUTH 3 TO 4 TIMES DAILY
     Route: 048
  2. NARDIL [Suspect]
     Dosage: 15 MG, 3 TO 4 TIMES DAILY
     Route: 048
  3. NARDIL [Suspect]
     Dosage: 15 MG, 3 TO 4 TIMES DAILY
     Route: 048

REACTIONS (6)
  - PAROSMIA [None]
  - BIOPSY [None]
  - PSORIASIS [None]
  - SKIN DISORDER [None]
  - PRURITUS [None]
  - DRUG INEFFECTIVE [None]
